FAERS Safety Report 6902196-6 (Version None)
Quarter: 2010Q3

REPORT INFORMATION
  Report Type: 
  Country: None (occurrence: None)
  Receive Date: 20100803
  Receipt Date: 20080425
  Transmission Date: 20110219
  Serious: No
  Sender: FDA-Public Use
  Company Number: US-PFIZER INC-2008037606

PATIENT
  Sex: Female
  Weight: 113.4 kg

DRUGS (2)
  1. LYRICA [Suspect]
     Indication: DIABETIC NEUROPATHY
     Dates: start: 20080424
  2. ALL OTHER THERAPEUTIC PRODUCTS [Concomitant]

REACTIONS (4)
  - DIZZINESS [None]
  - GAIT DISTURBANCE [None]
  - SPEECH DISORDER [None]
  - VISION BLURRED [None]
